FAERS Safety Report 16568808 (Version 6)
Quarter: 2020Q2

REPORT INFORMATION
  Report Type: Spontaneous
  Country: SE (occurrence: SE)
  Receive Date: 20190713
  Receipt Date: 20200603
  Transmission Date: 20200713
  Serious: Yes (Hospitalization, Other)
  Sender: FDA-Public Use
  Company Number: PHHY2019SE158727

PATIENT
  Age: 29 Year
  Sex: Female
  Weight: 63 kg

DRUGS (3)
  1. QUETIAPINE. [Suspect]
     Active Substance: QUETIAPINE
     Indication: ANXIETY
     Dosage: UNK
     Route: 065
     Dates: start: 20141115, end: 20141205
  2. ALCOHOL. [Suspect]
     Active Substance: ALCOHOL
     Indication: PRODUCT USED FOR UNKNOWN INDICATION
     Dosage: UNK
     Route: 065
  3. PREGABALIN. [Suspect]
     Active Substance: PREGABALIN
     Indication: OVERDOSE
     Dosage: UNK
     Route: 065

REACTIONS (10)
  - Hypoaesthesia [Recovered/Resolved]
  - Abdominal pain [Recovered/Resolved]
  - Platelet count decreased [Recovered/Resolved]
  - Cerebral infarction [Recovered/Resolved with Sequelae]
  - Blood creatinine increased [Recovered/Resolved]
  - Overdose [Recovered/Resolved]
  - Thrombotic thrombocytopenic purpura [Recovered/Resolved]
  - Product use in unapproved indication [Unknown]
  - Condition aggravated [Recovered/Resolved]
  - Microangiopathy [Unknown]

NARRATIVE: CASE EVENT DATE: 20141201
